FAERS Safety Report 4954367-6 (Version None)
Quarter: 2006Q1

REPORT INFORMATION
  Report Type: 
  Country: None (occurrence: None)
  Receive Date: 20060327
  Receipt Date: 20051207
  Transmission Date: 20060701
  Serious: Yes (Hospitalization)
  Sender: FDA-Public Use
  Company Number: US-MERCK-0512USA01037

PATIENT
  Age: 63 Year
  Sex: Male
  Weight: 73 kg

DRUGS (28)
  1. VIOXX [Suspect]
     Indication: ARTHRITIS
     Route: 048
     Dates: start: 20011106, end: 20031201
  2. ENDOCET [Concomitant]
     Indication: PAIN
     Route: 065
     Dates: start: 19990909
  3. ENDOCET [Concomitant]
     Indication: GOUT
     Route: 065
     Dates: start: 19990909
  4. COLCHICINE [Concomitant]
     Route: 065
  5. ENALAPRIL MALEATE [Concomitant]
     Indication: BLOOD PRESSURE INCREASED
     Route: 065
  6. DIAZEPAM [Concomitant]
     Indication: GOUT
     Route: 065
  7. INDOMETHACIN [Concomitant]
     Indication: PAIN
     Route: 065
     Dates: start: 19990909
  8. INDOMETHACIN [Concomitant]
     Indication: GOUT
     Route: 065
     Dates: start: 19990909
  9. ALLOPURINOL [Concomitant]
     Indication: GOUT
     Route: 065
  10. COUMADIN [Concomitant]
     Route: 065
     Dates: start: 20020604, end: 20020801
  11. HYDROCODONE BITARTRATE [Concomitant]
     Route: 065
  12. LIPITOR [Concomitant]
     Route: 065
  13. PREVACID [Concomitant]
     Indication: DYSPEPSIA
     Route: 065
  14. ACETYLCYSTEINE [Concomitant]
     Route: 065
  15. FUROSEMIDE [Concomitant]
     Route: 065
  16. TEQUIN [Concomitant]
     Route: 065
  17. VIAGRA [Concomitant]
     Indication: ERECTILE DYSFUNCTION
     Route: 065
  18. PLAVIX [Concomitant]
     Indication: ANTICOAGULANT THERAPY
     Route: 065
     Dates: start: 20021204, end: 20040601
  19. LISINOPRIL [Concomitant]
     Route: 065
  20. DOXYCYCLINE [Concomitant]
     Route: 065
  21. METHYLPREDNISOLONE [Concomitant]
     Route: 065
  22. COZAAR [Concomitant]
     Indication: ANTICOAGULANT THERAPY
     Route: 065
  23. FLOMAX [Concomitant]
     Indication: PROSTATISM
     Route: 065
  24. SULFAMETHOXAZOLE [Concomitant]
     Route: 065
  25. TOPROL-XL [Concomitant]
     Indication: BLOOD PRESSURE INCREASED
     Route: 065
     Dates: start: 20021107
  26. ASPIRIN [Concomitant]
     Indication: GOUT
     Route: 065
     Dates: start: 20021107, end: 20021201
  27. PRAVACHOL [Concomitant]
     Indication: PAIN
     Route: 065
     Dates: start: 20021204, end: 20040601
  28. PRAVACHOL [Concomitant]
     Indication: GOUT
     Route: 065
     Dates: start: 20021204, end: 20040601

REACTIONS (16)
  - ARTHRALGIA [None]
  - ATRIAL FIBRILLATION [None]
  - BENIGN PROSTATIC HYPERPLASIA [None]
  - CARDIAC DISORDER [None]
  - CHEST PAIN [None]
  - CONVULSION [None]
  - CORONARY ARTERY DISEASE [None]
  - EYE PAIN [None]
  - GOUT [None]
  - HAEMORRHAGE [None]
  - INJURY [None]
  - MYOCARDIAL INFARCTION [None]
  - OBESITY [None]
  - OCULAR HYPERAEMIA [None]
  - RENAL FAILURE [None]
  - RENAL FAILURE ACUTE [None]
